FAERS Safety Report 10540917 (Version 2)
Quarter: 2014Q4

REPORT INFORMATION
  Report Type: Report from Study
  Country: DE (occurrence: DE)
  Receive Date: 20141024
  Receipt Date: 20141024
  Transmission Date: 20150529
  Serious: Yes (Death, Hospitalization, Other)
  Sender: FDA-Public Use
  Company Number: PHHO2014DE005408

PATIENT
  Age: 57 Year
  Sex: Female
  Weight: 63 kg

DRUGS (2)
  1. DECORTIN H [Suspect]
     Active Substance: PREDNISOLONE
     Indication: GRAFT VERSUS HOST DISEASE
     Dosage: AS PER PROTOCOL
     Dates: start: 20130409, end: 20140121
  2. CERTICAN [Suspect]
     Active Substance: EVEROLIMUS
     Indication: GRAFT VERSUS HOST DISEASE
     Dosage: 1.25 MG, UNK [0.5-0.75]
     Route: 048
     Dates: start: 20130409, end: 20130812

REACTIONS (1)
  - Plasma cell myeloma [Fatal]

NARRATIVE: CASE EVENT DATE: 20140407
